FAERS Safety Report 24361431 (Version 1)
Quarter: 2024Q3

REPORT INFORMATION
  Report Type: Spontaneous
  Country: US (occurrence: US)
  Receive Date: 20240925
  Receipt Date: 20240925
  Transmission Date: 20241017
  Serious: Yes (Other)
  Sender: SANOFI AVENTIS
  Company Number: US-SA-2024SA274670

PATIENT
  Age: 62 Year
  Sex: Female

DRUGS (8)
  1. DUPIXENT [Suspect]
     Active Substance: DUPILUMAB
     Indication: Asthma
     Dosage: 200 MG, QOW
     Route: 058
  2. ALBUTEROL SULFATE [Concomitant]
     Active Substance: ALBUTEROL SULFATE
     Dosage: UNK
  3. CEPHALEXIN MONOHYDRATE [Concomitant]
     Active Substance: CEPHALEXIN MONOHYDRATE
     Dosage: UNK
  4. CLOBETASOL PROPIONATE [Concomitant]
     Active Substance: CLOBETASOL PROPIONATE
     Dosage: UNK
  5. OZEMPIC [Concomitant]
     Active Substance: SEMAGLUTIDE
     Dosage: UNK
  6. PANTOPRAZOLE SODIUM [Concomitant]
     Active Substance: PANTOPRAZOLE SODIUM
     Dosage: UNK
  7. SKYRIZI [Concomitant]
     Active Substance: RISANKIZUMAB-RZAA
     Dosage: UNK
  8. TRAMADOL HCL [Concomitant]
     Active Substance: TRAMADOL HYDROCHLORIDE
     Dosage: UNK

REACTIONS (22)
  - Neuropathy peripheral [Unknown]
  - Autoimmune hepatitis [Unknown]
  - Hepatic cirrhosis [Unknown]
  - Kidney infection [Unknown]
  - Brain fog [Unknown]
  - Cardiac disorder [Unknown]
  - Chest pain [Unknown]
  - Sneezing [Unknown]
  - Depression [Unknown]
  - Anxiety [Unknown]
  - Asthenia [Unknown]
  - Fatigue [Unknown]
  - Initial insomnia [Unknown]
  - Sleep disorder [Unknown]
  - Decreased appetite [Recovering/Resolving]
  - Restlessness [Unknown]
  - Fungal infection [Unknown]
  - Cystitis [Unknown]
  - Psoriasis [Unknown]
  - Asthma [Unknown]
  - Dyspnoea [Unknown]
  - Wheezing [Unknown]

NARRATIVE: CASE EVENT DATE: 20240904
